FAERS Safety Report 9463042 (Version 1)
Quarter: 2013Q3

REPORT INFORMATION
  Report Type: Report from Study
  Country: CA (occurrence: CA)
  Receive Date: 20130816
  Receipt Date: 20130816
  Transmission Date: 20140515
  Serious: Yes (Other)
  Sender: FDA-Public Use
  Company Number: CA-ABBOTT-13P-028-1131825-00

PATIENT
  Sex: Female
  Weight: 65.38 kg

DRUGS (5)
  1. HUMIRA [Suspect]
     Indication: RHEUMATOID ARTHRITIS
     Route: 058
     Dates: end: 201307
  2. METHOTREXATE [Concomitant]
     Indication: RHEUMATOID ARTHRITIS
     Route: 058
     Dates: start: 1997
  3. PERCOCET [Concomitant]
     Indication: PAIN
     Route: 048
     Dates: start: 2007
  4. NAPROXEN [Concomitant]
     Indication: JOINT SWELLING
     Route: 048
     Dates: start: 1997
  5. VIREAD [Concomitant]
     Indication: HEPATITIS B
     Route: 048
     Dates: start: 2010

REACTIONS (2)
  - Soft tissue disorder [Not Recovered/Not Resolved]
  - Rheumatoid arthritis [Not Recovered/Not Resolved]
